FAERS Safety Report 23974588 (Version 1)
Quarter: 2024Q2

REPORT INFORMATION
  Report Type: Spontaneous
  Country: SE (occurrence: None)
  Receive Date: 20240614
  Receipt Date: 20240614
  Transmission Date: 20240716
  Serious: Yes (Other)
  Sender: FDA-Public Use
  Company Number: 2024A133018

PATIENT
  Age: 29 Year
  Sex: Female
  Weight: 95 kg

DRUGS (15)
  1. TEZSPIRE [Suspect]
     Active Substance: TEZEPELUMAB-EKKO
     Indication: Asthma
     Dosage: 1 SYRINGE EVERY 4 WEEKS DOSE: SECOND DOSE
     Route: 058
     Dates: start: 20240507, end: 20240603
  2. MONTELUKAST SODIUM [Concomitant]
     Active Substance: MONTELUKAST SODIUM
     Dosage: X1
     Dates: start: 20171204
  3. TRELEGY ELLIPTA [Concomitant]
     Active Substance: FLUTICASONE FUROATE\UMECLIDINIUM BROMIDE\VILANTEROL TRIFENATATE
     Dosage: X1
     Dates: start: 20240430, end: 20240514
  4. DESLORATADIN STADA [Concomitant]
     Dosage: VB BUT HAVE TAKEN 2 DAILY
     Dates: start: 20180315
  5. DULOXETINE KRKA [Concomitant]
     Dosage: 1 X1
     Route: 048
     Dates: start: 20231003
  6. FINACEA [Concomitant]
     Active Substance: AZELAIC ACID
     Dosage: X 1
     Dates: start: 20220603
  7. UREA [Concomitant]
     Active Substance: UREA
     Dosage: 1-2 GRR DAILY
     Dates: start: 20180814
  8. PROPYLESS [Concomitant]
     Dosage: 1-2 GRR DAILY
     Dates: start: 20180314
  9. PROTOPIC [Concomitant]
     Active Substance: TACROLIMUS
     Dosage: 1X2
     Dates: start: 20240226
  10. MOMETASONE [Concomitant]
     Active Substance: MOMETASONE
     Dosage: NASAL SPRAY, SUSPENSION
     Dates: start: 20180315
  11. ORLISTAT STADA [Concomitant]
     Dosage: BY SPECIAL PRESCRIPTION
     Dates: start: 20240318
  12. NEXPLANON [Concomitant]
     Active Substance: ETONOGESTREL
     Dosage: 1 IMPLANT EVERY 3 YEARS
     Dates: start: 20221017
  13. INNOVAIR [Concomitant]
     Active Substance: BECLOMETHASONE DIPROPIONATE\FORMOTEROL
     Dosage: PRESSURISED INHALATION, SOLUTION
     Dates: start: 20200910
  14. MOMETASONE FUROATE [Concomitant]
     Active Substance: MOMETASONE FUROATE
     Dosage: AS PRESCRIBED
     Dates: start: 20190718
  15. BETAMETHASONE [Concomitant]
     Active Substance: BETAMETHASONE\BETAMETHASONE DIPROPIONATE
     Dosage: BY PRESCRIPTION
     Dates: start: 20220404

REACTIONS (3)
  - Dyspnoea [Recovered/Resolved]
  - Cough [Recovered/Resolved]
  - Rash erythematous [Recovered/Resolved]

NARRATIVE: CASE EVENT DATE: 20240508
